FAERS Safety Report 22026765 (Version 1)
Quarter: 2023Q1

REPORT INFORMATION
  Report Type: Spontaneous
  Country: US (occurrence: US)
  Receive Date: 20230223
  Receipt Date: 20230223
  Transmission Date: 20230417
  Serious: No
  Sender: FDA-Public Use
  Company Number: US-TAKEDA-2023TUS017621

PATIENT
  Age: 34 Year
  Sex: Female

DRUGS (1)
  1. LEUPROLIDE ACETATE [Suspect]
     Active Substance: LEUPROLIDE ACETATE
     Indication: Adenomyosis
     Dosage: 3.75 MILLIGRAM, MONTHLY
     Route: 030

REACTIONS (2)
  - Off label use [Unknown]
  - No adverse event [Unknown]
